FAERS Safety Report 18419638 (Version 1)
Quarter: 2020Q4

REPORT INFORMATION
  Report Type: Spontaneous
  Country: DE (occurrence: DE)
  Receive Date: 20201023
  Receipt Date: 20201023
  Transmission Date: 20210114
  Serious: Yes (Other)
  Sender: FDA-Public Use
  Company Number: NVSC2020DE281384

PATIENT
  Sex: Male

DRUGS (5)
  1. TORASEMID [Concomitant]
     Active Substance: TORSEMIDE
     Indication: OEDEMA
     Dosage: 30 MG, QD
     Route: 065
  2. TORASEMID [Concomitant]
     Active Substance: TORSEMIDE
     Indication: SWELLING
  3. BISOPROLOL [Concomitant]
     Active Substance: BISOPROLOL
     Indication: HYPERTENSION
     Dosage: 10 MG, QD (ONCE IN THE MORNING)
     Route: 065
  4. AMIODARON [Concomitant]
     Active Substance: AMIODARONE
     Indication: ATRIAL FIBRILLATION
     Dosage: 100 MG, QD (ONCE IN THE MORNING)
     Route: 065
  5. ENTRESTO [Suspect]
     Active Substance: SACUBITRIL\VALSARTAN
     Indication: RIGHT VENTRICULAR FAILURE
     Dosage: 100 MG (49 MG /51 MG), BID (2 TIMES DAILY: 1 DF MORNING AND 1 DE IN EVENING)
     Route: 048
     Dates: start: 201907, end: 20201012

REACTIONS (8)
  - Diarrhoea [Recovered/Resolved]
  - Blood creatinine decreased [Not Recovered/Not Resolved]
  - Hypotension [Unknown]
  - Pruritus [Not Recovered/Not Resolved]
  - Product use in unapproved indication [Unknown]
  - Sleep disorder [Not Recovered/Not Resolved]
  - Anorectal discomfort [Recovered/Resolved]
  - Myocardial infarction [Unknown]

NARRATIVE: CASE EVENT DATE: 2020
